FAERS Safety Report 15708252 (Version 4)
Quarter: 2022Q3

REPORT INFORMATION
  Report Type: Spontaneous
  Country: US (occurrence: US)
  Receive Date: 20181211
  Receipt Date: 20220727
  Transmission Date: 20221026
  Serious: Yes (Other)
  Sender: FDA-Public Use
  Company Number: US-PFIZER INC-2018506293

PATIENT
  Age: 42 Year
  Sex: Male
  Weight: 135.62 kg

DRUGS (2)
  1. SUTENT [Suspect]
     Active Substance: SUNITINIB MALATE
     Indication: Renal cancer
     Dosage: 37.5 MG, CYCLIC (DAILY FOR 2 WEEKS ON, THEN 1 WEEK OFF)
     Route: 048
     Dates: start: 20181201
  2. SUTENT [Suspect]
     Active Substance: SUNITINIB MALATE
     Dosage: UNK
     Dates: start: 201903, end: 201903

REACTIONS (8)
  - Posterior reversible encephalopathy syndrome [Unknown]
  - Headache [Not Recovered/Not Resolved]
  - Dry mouth [Unknown]
  - Dizziness [Unknown]
  - Vomiting [Unknown]
  - Photosensitivity reaction [Unknown]
  - Hyperacusis [Unknown]
  - Screaming [Unknown]

NARRATIVE: CASE EVENT DATE: 20181203
